FAERS Safety Report 20082968 (Version 2)
Quarter: 2021Q4

REPORT INFORMATION
  Report Type: Spontaneous
  Country: DE (occurrence: DE)
  Receive Date: 20211117
  Receipt Date: 20211124
  Transmission Date: 20220303
  Serious: Yes (Hospitalization)
  Sender: FDA-Public Use
  Company Number: DE-ADRED-07152-01

PATIENT
  Age: 70 Year
  Sex: Female

DRUGS (20)
  1. PEGFILGRASTIM [Suspect]
     Active Substance: PEGFILGRASTIM
     Indication: Product used for unknown indication
     Dosage: UNK (SCHEME)
  2. AMDINOCILLIN PIVOXIL [Concomitant]
     Active Substance: AMDINOCILLIN PIVOXIL
     Dosage: 400 MILLIGRAM, TID (400 MG, 1-1-1-0)
  3. MAGNESIUM ASPARTATE [Concomitant]
     Active Substance: MAGNESIUM ASPARTATE
     Dosage: UNK UNK, QD (1-0-0-0)
  4. AZITHROMYCIN [Concomitant]
     Active Substance: AZITHROMYCIN
     Dosage: 500 MILLIGRAM (500 MG, SCHEMA)
  5. ATORVASTATIN [Concomitant]
     Active Substance: ATORVASTATIN
     Dosage: 40 MILLIGRAM, QD (40 MG, 0-0-1-0)
  6. SPIRONOLACTONE [Concomitant]
     Active Substance: SPIRONOLACTONE
     Dosage: 25 MILLIGRAM, QD (25 MG, 1-0-0-0)
  7. COLECALCIFEROL W/SODIUM FLUORIDE [Concomitant]
     Dosage: 1000 INTERNATIONAL UNIT, QD (1000 IE, 1-0-0-0)
  8. TORSEMIDE [Concomitant]
     Active Substance: TORSEMIDE
     Dosage: 10 MILLIGRAM, BID (10 MG, 2-0-0-0)
  9. VALACYCLOVIR HYDROCHLORIDE [Concomitant]
     Active Substance: VALACYCLOVIR HYDROCHLORIDE
     Dosage: 1 GRAM, BID (1 G, 1-0-1-0)
  10. TROSPIUM [Concomitant]
     Active Substance: TROSPIUM
     Dosage: 15 MILLIGRAM, QD (15 MG, 1-0-0-0)
  11. AMPHOTERICIN B [Concomitant]
     Active Substance: AMPHOTERICIN B
     Dosage: UNK UNK, QID (1-1-1-1)
  12. FOLIC ACID [Concomitant]
     Active Substance: FOLIC ACID
     Dosage: 5 MILLIGRAM, QD (5 MG, 1-0-0-0)
  13. PREDNISOLON                        /00016201/ [Concomitant]
     Dosage: 10 MILLIGRAM, QD (10 MG, 1-0-0-0)
  14. INSULIN GLARGINE [Concomitant]
     Active Substance: INSULIN GLARGINE
     Dosage: UNK (SCHEMA)
  15. POLYETHYLENE GLYCOL 3350\POTASSIUM CHLORIDE\SODIUM BICARBONATE\SODIUM [Concomitant]
     Active Substance: POLYETHYLENE GLYCOL 3350\POTASSIUM CHLORIDE\SODIUM BICARBONATE\SODIUM CHLORIDE
     Dosage: UNK UNK, QD (1-0-0-0)
  16. PANTOPRAZOLE [Concomitant]
     Active Substance: PANTOPRAZOLE
     Dosage: 40 MILLIGRAM, QD (40 MG, 1-0-0-0)
  17. DEFERASIROX [Concomitant]
     Active Substance: DEFERASIROX
     Dosage: 360 MILLIGRAM, BID (360 MG, 1-0-1-0)
  18. INSULIN LISPRO [Concomitant]
     Active Substance: INSULIN LISPRO
     Dosage: UNK (SCHEMA)
  19. NEBIVOLOL [Concomitant]
     Active Substance: NEBIVOLOL
     Dosage: 2.5 MILLIGRAM, QD (2.5 MG, 1-0-0-0)
  20. LEVOTHYROXINE SODIUM [Concomitant]
     Active Substance: LEVOTHYROXINE SODIUM
     Dosage: 50 MICROGRAM, QD (50 ?G, 1-0-0-0)

REACTIONS (14)
  - Weight increased [Unknown]
  - Oedema peripheral [Unknown]
  - Sepsis [Unknown]
  - Anaemia [Unknown]
  - Tachypnoea [Unknown]
  - Hyperglycaemia [Unknown]
  - Tachycardia [Unknown]
  - Electrocardiogram abnormal [Unknown]
  - Pyrexia [Unknown]
  - Renal impairment [Unknown]
  - General physical health deterioration [Unknown]
  - Condition aggravated [Unknown]
  - Systemic infection [Unknown]
  - Musculoskeletal pain [Unknown]
